FAERS Safety Report 17027358 (Version 2)
Quarter: 2019Q4

REPORT INFORMATION
  Report Type: Report from Study
  Country: BE (occurrence: BE)
  Receive Date: 20191113
  Receipt Date: 20191120
  Transmission Date: 20200122
  Serious: Yes (Death)
  Sender: FDA-Public Use
  Company Number: BE-PFIZER INC-2019487330

PATIENT
  Age: 57 Year
  Sex: Female
  Weight: 67 kg

DRUGS (6)
  1. DALTEPARIN SODIUM [Suspect]
     Active Substance: DALTEPARIN SODIUM
     Indication: PULMONARY EMBOLISM
     Dosage: 10000 IU, DAILY
     Route: 058
     Dates: start: 20190523, end: 20190819
  2. XGEVA [Concomitant]
     Active Substance: DENOSUMAB
     Indication: PROPHYLAXIS
     Dosage: 120 MG, MONTHLY
     Route: 058
     Dates: start: 20151005
  3. FEMARA [Concomitant]
     Active Substance: LETROZOLE
     Indication: NEOPLASM MALIGNANT
     Dosage: 2.5 MG, DAILY
     Route: 048
     Dates: start: 20180820
  4. OXYNORM INSTANT [Concomitant]
     Indication: PROPHYLAXIS
     Dosage: 5 MG, AS NEEDED
     Route: 048
     Dates: start: 20190416
  5. D-CURE [Concomitant]
     Active Substance: CHOLECALCIFEROL
     Indication: PROPHYLAXIS
     Dosage: 2400 IU, DAILY
     Route: 048
     Dates: start: 20151005
  6. CACO3 [Concomitant]
     Indication: PROPHYLAXIS
     Dosage: 1 G, DAILY
     Route: 048
     Dates: start: 20190522

REACTIONS (1)
  - Disease progression [Fatal]

NARRATIVE: CASE EVENT DATE: 20190816
